FAERS Safety Report 14939918 (Version 1)
Quarter: 2018Q2

REPORT INFORMATION
  Report Type: Spontaneous
  Country: US (occurrence: US)
  Receive Date: 20180507
  Receipt Date: 20180507
  Transmission Date: 20180711
  Serious: Yes (Other)
  Sender: FDA-Public Use
  Company Number: None

PATIENT
  Age: 28 Year
  Sex: Female
  Weight: 51.75 kg

DRUGS (2)
  1. SUBUTEX [Concomitant]
     Active Substance: BUPRENORPHINE HYDROCHLORIDE
  2. SUBOXONE [Suspect]
     Active Substance: BUPRENORPHINE HYDROCHLORIDE\NALOXONE HYDROCHLORIDE
     Indication: DEPENDENCE
     Dosage: ?          QUANTITY:14 FILM;?
     Route: 060

REACTIONS (6)
  - Pharyngeal oedema [None]
  - Hypersensitivity [None]
  - Oral mucosal blistering [None]
  - Swollen tongue [None]
  - Migraine [None]
  - Alopecia [None]

NARRATIVE: CASE EVENT DATE: 20170217
